FAERS Safety Report 20627451 (Version 1)
Quarter: 2022Q1

REPORT INFORMATION
  Report Type: Spontaneous
  Country: US (occurrence: None)
  Receive Date: 20220323
  Receipt Date: 20220323
  Transmission Date: 20220424
  Serious: Yes (Other)
  Sender: FDA-Public Use
  Company Number: None

PATIENT
  Sex: Female

DRUGS (3)
  1. SECRET ANTIPERSPIRANT POWDER FRESH [Suspect]
     Active Substance: ALUMINUM CHLOROHYDRATE
     Dosage: FREQUENCY : TWICE A DAY;?
     Route: 061
     Dates: end: 20211213
  2. SECRET DRY WATERLILY [Suspect]
     Active Substance: ALUMINUM CHLOROHYDRATE
     Dosage: FREQUENCY : TWICE A DAY;?
     Route: 061
     Dates: end: 20211213
  3. SECRET DRY ROSE [Suspect]
     Active Substance: ALUMINUM CHLOROHYDRATE
     Route: 061
     Dates: end: 20211213

REACTIONS (10)
  - Cervix carcinoma [None]
  - Skin squamous cell carcinoma metastatic [None]
  - Product administered at inappropriate site [None]
  - Expired product administered [None]
  - Cervix haemorrhage uterine [None]
  - Application site erythema [None]
  - Skin erosion [None]
  - Macule [None]
  - Recalled product administered [None]
  - Pain of skin [None]

NARRATIVE: CASE EVENT DATE: 19890615
